FAERS Safety Report 7921196-0 (Version None)
Quarter: 2011Q4

REPORT INFORMATION
  Report Type: 
  Country: None (occurrence: None)
  Receive Date: 20111117
  Receipt Date: 20111107
  Transmission Date: 20120403
  Serious: Yes (Other)
  Sender: FDA-Public Use
  Company Number: US-BAYER-2011-053118

PATIENT
  Age: 37 Year
  Sex: Female
  Weight: 122.45 kg

DRUGS (5)
  1. MOTRIN [Concomitant]
     Dosage: 600 MG, UNK
     Dates: start: 20080917
  2. ACCUPRIL [Concomitant]
     Indication: PROTEINURIA
     Dosage: 10 MG, UNK
     Dates: start: 20001205
  3. ACCUPRIL [Concomitant]
     Indication: HYPERTENSION
  4. DOXYCYCLINE [Concomitant]
     Dosage: 100 MG, UNK
  5. YAZ [Suspect]
     Indication: CONTRACEPTION
     Dosage: UNK
     Dates: start: 20080101, end: 20090101

REACTIONS (3)
  - OEDEMA PERIPHERAL [None]
  - DEEP VEIN THROMBOSIS [None]
  - INJURY [None]
